FAERS Safety Report 5574496-6 (Version None)
Quarter: 2007Q4

REPORT INFORMATION
  Report Type: 
  Country: None (occurrence: None)
  Receive Date: 20071227
  Receipt Date: 20071217
  Transmission Date: 20080405
  Serious: Yes (Other)
  Sender: FDA-Public Use
  Company Number: DE-BAYER-200718440GPV

PATIENT
  Age: 49 Year
  Sex: Female
  Weight: 53 kg

DRUGS (2)
  1. MAGNEVIST [Suspect]
     Indication: ABDOMINAL MASS
     Dosage: TOTAL DAILY DOSE: 1 ML
     Route: 042
     Dates: start: 20071105, end: 20071105
  2. MAGNEVIST [Suspect]
     Dosage: TOTAL DAILY DOSE: 15 ML
     Route: 042
     Dates: start: 20071105, end: 20071105

REACTIONS (5)
  - COLD SWEAT [None]
  - HYPERSENSITIVITY [None]
  - NAUSEA [None]
  - THROAT TIGHTNESS [None]
  - TONGUE COATED [None]
